FAERS Safety Report 5033658-7 (Version None)
Quarter: 2006Q2

REPORT INFORMATION
  Report Type: 
  Country: None (occurrence: None)
  Receive Date: 20060623
  Receipt Date: 20060602
  Transmission Date: 20061013
  Serious: Yes (Other)
  Sender: FDA-Public Use
  Company Number: US-GLAXOSMITHKLINE-A0609501A

PATIENT
  Sex: Male

DRUGS (1)
  1. LEXIVA [Suspect]
     Indication: HIV INFECTION
     Route: 048
     Dates: start: 20060101

REACTIONS (2)
  - HAEMOLYTIC ANAEMIA [None]
  - STEVENS-JOHNSON SYNDROME [None]
